FAERS Safety Report 8265974 (Version 2)
Quarter: 2012Q4

REPORT INFORMATION
  Report Type: 
  Country: TR (occurrence: TR)
  Receive Date: 20111129
  Receipt Date: 20121105
  Transmission Date: 20130627
  Serious: Yes (Death, Other)
  Sender: FDA-Public Use
  Company Number: TR-RANBAXY-2011RR-50539

PATIENT
  Age: 34 Year
  Sex: Female

DRUGS (2)
  1. SUMATRIPTAN [Suspect]
     Indication: HEADACHE
     Dosage: 20 mg
     Route: 045
  2. METOCLOPRAMIDE [Concomitant]
     Indication: NAUSEA
     Dosage: 10 mg
     Route: 030

REACTIONS (2)
  - Brain stem infarction [Recovering/Resolving]
  - Basilar artery occlusion [Recovering/Resolving]
